FAERS Safety Report 7641060-4 (Version None)
Quarter: 2011Q3

REPORT INFORMATION
  Report Type: 
  Country: None (occurrence: None)
  Receive Date: 20110722
  Receipt Date: 20110706
  Transmission Date: 20111222
  Serious: Yes (Hospitalization)
  Sender: FDA-Public Use
  Company Number: 2011MA008443

PATIENT
  Age: 33 Year
  Sex: Male

DRUGS (3)
  1. FLUOXETINE [Concomitant]
  2. SERTRALINE HYDROCHLORIDE [Suspect]
     Indication: HALLUCINATION, AUDITORY
     Dosage: 100 MG; QD
  3. DIAZEPAM [Suspect]
     Indication: AFFECTIVE DISORDER

REACTIONS (6)
  - SEROTONIN SYNDROME [None]
  - FEELING ABNORMAL [None]
  - DISTURBANCE IN ATTENTION [None]
  - ABNORMAL BEHAVIOUR [None]
  - VISUAL IMPAIRMENT [None]
  - HAEMATEMESIS [None]
